FAERS Safety Report 9201209 (Version 1)
Quarter: 2013Q1

REPORT INFORMATION
  Report Type: Spontaneous
  Country: US (occurrence: None)
  Receive Date: 20130327
  Receipt Date: 20130327
  Transmission Date: 20140127
  Serious: Yes (Other)
  Sender: FDA-Public Use
  Company Number: ADR-2013-00509

PATIENT
  Age: 55 Year
  Sex: Female

DRUGS (4)
  1. BACLOFEN [Suspect]
  2. FENTANYL [Concomitant]
  3. MORPHINE [Concomitant]
  4. CYMBALTA [Concomitant]

REACTIONS (7)
  - Spinal pain [None]
  - Pain in extremity [None]
  - Feeling hot [None]
  - Medical device complication [None]
  - Haemorrhage [None]
  - Product quality issue [None]
  - Device damage [None]
